FAERS Safety Report 4311053-3 (Version None)
Quarter: 2004Q1

REPORT INFORMATION
  Report Type: 
  Country: None (occurrence: None)
  Receive Date: 20040302
  Receipt Date: 20040223
  Transmission Date: 20041129
  Serious: Yes (Hospitalization)
  Sender: FDA-Public Use
  Company Number: US-JNJFOC-20040205916

PATIENT
  Age: 54 Year
  Sex: Female

DRUGS (8)
  1. INFLIXIMAB (INFLIXIMAB, RECOMBINANT) LYOPHILIZED POWDER [Suspect]
     Indication: RHEUMATOID ARTHRITIS
     Dosage: INTRAVENOUS
     Route: 042
     Dates: start: 20000925
  2. CALTRATE (CALCIUM CARBONATE) [Concomitant]
  3. FOLIC ACID [Concomitant]
  4. FOSAMAX [Concomitant]
  5. METHOTREXATE [Concomitant]
  6. ORTHO PREFEST (ETHINYLESTRADIOL/NORETHINDRONE) [Concomitant]
  7. VITAMIN F (VITAMIN F) [Concomitant]
  8. MULTIVITAMIN (MULTIVITAMINS) [Concomitant]

REACTIONS (1)
  - APPENDICECTOMY [None]
